FAERS Safety Report 6945653-9 (Version None)
Quarter: 2010Q3

REPORT INFORMATION
  Report Type: 
  Country: None (occurrence: None)
  Receive Date: 20100827
  Receipt Date: 20100825
  Transmission Date: 20110219
  Serious: Yes (Hospitalization)
  Sender: FDA-Public Use
  Company Number: US-MERCK-1008USA03543

PATIENT
  Sex: Female

DRUGS (2)
  1. PEPCID [Suspect]
     Route: 048
  2. HYDREA [Concomitant]
     Route: 065

REACTIONS (9)
  - BRONCHITIS [None]
  - CHEST PAIN [None]
  - EYE SWELLING [None]
  - FLATULENCE [None]
  - FLUID RETENTION [None]
  - JOINT SWELLING [None]
  - PLATELET COUNT INCREASED [None]
  - PNEUMONIA [None]
  - WEIGHT INCREASED [None]
